FAERS Safety Report 11009720 (Version 1)
Quarter: 2015Q2

REPORT INFORMATION
  Report Type: Spontaneous
  Country: US (occurrence: US)
  Receive Date: 20150410
  Receipt Date: 20150410
  Transmission Date: 20150821
  Serious: Yes (Other)
  Sender: FDA-Public Use
  Company Number: US-ROCHE-1561358

PATIENT
  Sex: Female

DRUGS (1)
  1. KADCYLA [Suspect]
     Active Substance: ADO-TRASTUZUMAB EMTANSINE
     Indication: BREAST CANCER STAGE IV
     Dosage: COMPLETED 3 CYCLES
     Route: 065

REACTIONS (2)
  - Telangiectasia [Not Recovered/Not Resolved]
  - Epistaxis [Not Recovered/Not Resolved]
